FAERS Safety Report 23167013 (Version 1)
Quarter: 2023Q4

REPORT INFORMATION
  Report Type: Spontaneous
  Country: US (occurrence: None)
  Receive Date: 20231109
  Receipt Date: 20231109
  Transmission Date: 20240109
  Serious: No
  Sender: FDA-Public Use
  Company Number: None

PATIENT
  Age: 37 Year
  Sex: Female
  Weight: 66.15 kg

DRUGS (1)
  1. PHEXXI VAGINAL GEL [Suspect]
     Active Substance: CITRIC ACID MONOHYDRATE\LACTIC ACID, L-\POTASSIUM BITARTRATE
     Indication: Contraception
     Dates: start: 20231019, end: 20231019

REACTIONS (4)
  - Fungal infection [None]
  - Application site swelling [None]
  - Application site pruritus [None]
  - Therapy cessation [None]

NARRATIVE: CASE EVENT DATE: 20231019
